FAERS Safety Report 17266945 (Version 1)
Quarter: 2020Q1

REPORT INFORMATION
  Report Type: Spontaneous
  Country: US (occurrence: US)
  Receive Date: 20200113
  Receipt Date: 20200113
  Transmission Date: 20200409
  Serious: Yes (Other)
  Sender: FDA-Public Use
  Company Number: None

PATIENT
  Age: 24 Year
  Sex: Female
  Weight: 63 kg

DRUGS (1)
  1. EMGALITY [Suspect]
     Active Substance: GALCANEZUMAB-GNLM
     Indication: MIGRAINE
     Dosage: ?          QUANTITY:2 INJECTION(S);OTHER FREQUENCY:LOADING DOSE/1X MO;?
     Route: 058

REACTIONS (6)
  - Vertigo [None]
  - Syncope [None]
  - Presyncope [None]
  - Dizziness [None]
  - Paraesthesia [None]
  - Feeling hot [None]

NARRATIVE: CASE EVENT DATE: 20200111
